FAERS Safety Report 4659871-6 (Version None)
Quarter: 2005Q2

REPORT INFORMATION
  Report Type: 
  Country: None (occurrence: None)
  Receive Date: 20050502
  Receipt Date: 20041005
  Transmission Date: 20051028
  Serious: Yes (Hospitalization)
  Sender: FDA-Public Use
  Company Number: US094319

PATIENT
  Age: 74 Year

DRUGS (1)
  1. EPOGEN [Suspect]
     Indication: DIALYSIS
     Dosage: 2500 IU, 3 IN 1 WEEKS

REACTIONS (3)
  - ARTERIOVENOUS GRAFT SITE HAEMORRHAGE [None]
  - CEREBRAL THROMBOSIS [None]
  - THERAPEUTIC RESPONSE DECREASED [None]
